FAERS Safety Report 4768066-7 (Version None)
Quarter: 2005Q3

REPORT INFORMATION
  Report Type: 
  Country: None (occurrence: None)
  Receive Date: 20050906
  Receipt Date: 20050517
  Transmission Date: 20060218
  Serious: No
  Sender: FDA-Public Use
  Company Number: 2005-BP-08177BP

PATIENT
  Age: 77 Year
  Sex: Female
  Weight: 61.4 kg

DRUGS (10)
  1. SPIRIVA [Suspect]
     Indication: CHRONIC OBSTRUCTIVE PULMONARY DISEASE
     Dosage: 18 MCG (18 MCG, QD) IH
     Route: 055
     Dates: start: 20050401, end: 20050519
  2. SPIRIVA [Suspect]
     Indication: EMPHYSEMA
     Dosage: 18 MCG (18 MCG, QD) IH
     Route: 055
     Dates: start: 20050401, end: 20050519
  3. SPIRIVA [Suspect]
     Indication: INFLAMMATION
     Dosage: 18 MCG (18 MCG, QD) IH
     Route: 055
     Dates: start: 20050401, end: 20050519
  4. SPIRIVA [Suspect]
  5. ADVAIR DISKUS 100/50 [Concomitant]
  6. PRINIVIL [Concomitant]
  7. SYNTHROID [Concomitant]
  8. EVISTA [Concomitant]
  9. TIMOPTIC EYE GELS (TIMOLOL MALEATE) [Concomitant]
  10. ALBUTEROL [Concomitant]

REACTIONS (5)
  - ANXIETY [None]
  - BLOOD PRESSURE INCREASED [None]
  - ERUCTATION [None]
  - NERVOUSNESS [None]
  - RASH GENERALISED [None]
